FAERS Safety Report 11880862 (Version 2)
Quarter: 2016Q2

REPORT INFORMATION
  Report Type: Spontaneous
  Country: US (occurrence: US)
  Receive Date: 20151230
  Receipt Date: 20160428
  Transmission Date: 20160815
  Serious: No
  Sender: FDA-Public Use
  Company Number: US-ACTELION PHARMACEUTICALS US, INC.-A-US2015-128217

PATIENT
  Age: 21 Year
  Sex: Male

DRUGS (8)
  1. HYDROCHLOROTHIAZIDE. [Concomitant]
     Active Substance: HYDROCHLOROTHIAZIDE
     Dosage: 50 MG, UNK
     Route: 049
     Dates: start: 20151029
  2. MIRALAX [Concomitant]
     Active Substance: POLYETHYLENE GLYCOL 3350
     Dosage: 17 G, UNK
     Route: 049
     Dates: start: 20151029
  3. LORATADINE 1A PHARMA [Concomitant]
     Dosage: 10 MG, UNK
     Route: 049
     Dates: start: 20151029
  4. ROBINUL [Concomitant]
     Active Substance: GLYCOPYRROLATE
     Dosage: 1 MG, UNK
     Route: 049
     Dates: start: 20151029
  5. KEPPRA [Concomitant]
     Active Substance: LEVETIRACETAM
     Dosage: 100 MG, UNK
     Route: 049
     Dates: start: 20151029
  6. VALPROIC ACID. [Concomitant]
     Active Substance: VALPROIC ACID
     Dosage: 250 MG/5 ML
     Route: 049
     Dates: start: 20151029
  7. ZAVESCA [Suspect]
     Active Substance: MIGLUSTAT
     Indication: LIPIDOSIS
     Dosage: 100 MG, TID
     Route: 048
     Dates: start: 20151029
  8. ZONISAMIDE. [Concomitant]
     Active Substance: ZONISAMIDE
     Dosage: 100 MG, UNK
     Route: 049
     Dates: start: 20151029

REACTIONS (2)
  - Diarrhoea [Recovered/Resolved]
  - Candida infection [Not Recovered/Not Resolved]
